FAERS Safety Report 9390992 (Version 3)
Quarter: 2014Q4

REPORT INFORMATION
  Report Type: Spontaneous
  Country: US (occurrence: US)
  Receive Date: 20130709
  Receipt Date: 20141229
  Transmission Date: 20150529
  Serious: Yes (Life-Threatening, Hospitalization)
  Sender: FDA-Public Use
  Company Number: US-BAYER-2013-080108

PATIENT
  Age: 6 Month
  Sex: Male
  Weight: 8 kg

DRUGS (7)
  1. PRECEDEX [Concomitant]
     Active Substance: DEXMEDETOMIDINE HYDROCHLORIDE
  2. GADAVIST [Suspect]
     Active Substance: GADOBUTROL
     Indication: NUCLEAR MAGNETIC RESONANCE IMAGING
     Dosage: 0.8 ML, ONCE
     Route: 042
     Dates: start: 20130627, end: 20130627
  3. GADAVIST [Suspect]
     Active Substance: GADOBUTROL
     Indication: ANGIOGRAM
  4. GADAVIST [Suspect]
     Active Substance: GADOBUTROL
     Indication: UROGRAM
  5. VERSED [Suspect]
     Active Substance: MIDAZOLAM HYDROCHLORIDE
     Dosage: UNK
     Route: 042
     Dates: start: 20140627
  6. GADAVIST [Suspect]
     Active Substance: GADOBUTROL
     Indication: MENINGITIS
  7. GADAVIST [Suspect]
     Active Substance: GADOBUTROL
     Indication: NEUROLOGICAL SYMPTOM

REACTIONS (7)
  - Urticaria [Recovering/Resolving]
  - Wheezing [Recovering/Resolving]
  - Respiratory failure [Recovering/Resolving]
  - Dyspnoea [Recovering/Resolving]
  - Rash [Recovering/Resolving]
  - Product use issue [None]
  - Anaphylactic reaction [Recovering/Resolving]

NARRATIVE: CASE EVENT DATE: 20130627
